FAERS Safety Report 7501355-1 (Version None)
Quarter: 2011Q2

REPORT INFORMATION
  Report Type: 
  Country: None (occurrence: None)
  Receive Date: 20110524
  Receipt Date: 20110321
  Transmission Date: 20111010
  Serious: No
  Sender: FDA-Public Use
  Company Number: US-BAYER-2010-007449

PATIENT
  Age: 33 Year
  Sex: Female

DRUGS (1)
  1. MIRENA [Suspect]
     Indication: CONTRACEPTION
     Dosage: 20 ?G/D, CONT
     Dates: start: 20090801

REACTIONS (10)
  - ERYTHEMA [None]
  - IRRITABILITY [None]
  - BREAST TENDERNESS [None]
  - BACK PAIN [None]
  - VAGINAL HAEMORRHAGE [None]
  - MENORRHAGIA [None]
  - VAGINAL ODOUR [None]
  - VAGINAL DISCHARGE [None]
  - AMENORRHOEA [None]
  - PELVIC PAIN [None]
